FAERS Safety Report 14668425 (Version 1)
Quarter: 2018Q1

REPORT INFORMATION
  Report Type: Spontaneous
  Country: US (occurrence: US)
  Receive Date: 20180321
  Receipt Date: 20180321
  Transmission Date: 20180509
  Serious: Yes (Other)
  Sender: FDA-Public Use
  Company Number: None

PATIENT
  Age: 81 Year
  Sex: Female
  Weight: 110.25 kg

DRUGS (1)
  1. CIPOROFLOXACN 500MG [Suspect]
     Active Substance: CIPROFLOXACIN
     Indication: URINARY TRACT INFECTION
     Route: 048

REACTIONS (4)
  - Tendon disorder [None]
  - Rash [None]
  - Fungal infection [None]
  - Mental disorder [None]

NARRATIVE: CASE EVENT DATE: 20180301
